FAERS Safety Report 7107645-9 (Version None)
Quarter: 2010Q4

REPORT INFORMATION
  Report Type: 
  Country: None (occurrence: None)
  Receive Date: 20101117
  Receipt Date: 20101105
  Transmission Date: 20110411
  Serious: Yes (Death)
  Sender: FDA-Public Use
  Company Number: GB-TEVA-254875ISR

PATIENT
  Age: 60 Year
  Sex: Female

DRUGS (2)
  1. DIAZEPAM [Suspect]
     Indication: MOTOR NEURONE DISEASE
  2. TRAMADOL HCL [Suspect]
     Indication: MOTOR NEURONE DISEASE

REACTIONS (2)
  - COMPLETED SUICIDE [None]
  - OVERDOSE [None]
